FAERS Safety Report 11811889 (Version 3)
Quarter: 2016Q1

REPORT INFORMATION
  Report Type: Spontaneous
  Country: JP (occurrence: JP)
  Receive Date: 20151208
  Receipt Date: 20160113
  Transmission Date: 20160525
  Serious: No
  Sender: FDA-Public Use
  Company Number: JP-PFIZER INC-2015417946

PATIENT
  Age: 69 Year
  Sex: Male

DRUGS (7)
  1. DOMPERIDONE [Concomitant]
     Active Substance: DOMPERIDONE
     Indication: SPINAL OSTEOARTHRITIS
     Dosage: 10 MG, AS NEEDED
     Route: 048
  2. TIZANIDINE /00740702/ [Concomitant]
     Indication: SPINAL OSTEOARTHRITIS
     Dosage: 1 MG, 3X/DAY
     Route: 048
  3. DEPAS [Concomitant]
     Active Substance: ETIZOLAM
     Indication: SPINAL OSTEOARTHRITIS
     Dosage: 0.5 MG, 1X/DAY
     Route: 048
  4. METHYCOBAL [Concomitant]
     Active Substance: METHYLCOBALAMIN
     Indication: SPINAL OSTEOARTHRITIS
     Dosage: 500 UG, 3X/DAY
     Route: 048
  5. SELTOUCH [Concomitant]
     Active Substance: FELBINAC
     Indication: SPINAL OSTEOARTHRITIS
     Dosage: 70 MG, 1X/DAY
     Route: 062
  6. LYRICA [Suspect]
     Active Substance: PREGABALIN
     Indication: SPINAL OSTEOARTHRITIS
     Dosage: 75 MG, 2X/DAY
     Route: 048
  7. LOXONIN [Concomitant]
     Active Substance: LOXOPROFEN SODIUM
     Indication: SPINAL OSTEOARTHRITIS
     Dosage: 100 MG, 1X/DAY
     Route: 062

REACTIONS (4)
  - Tongue disorder [Not Recovered/Not Resolved]
  - Product use issue [Unknown]
  - Thirst [Not Recovered/Not Resolved]
  - Paraesthesia oral [Not Recovered/Not Resolved]

NARRATIVE: CASE EVENT DATE: 20151116
